FAERS Safety Report 10133610 (Version 2)
Quarter: 2014Q2

REPORT INFORMATION
  Report Type: Spontaneous
  Country: JP (occurrence: JP)
  Receive Date: 20140428
  Receipt Date: 20140527
  Transmission Date: 20141212
  Serious: Yes (Hospitalization)
  Sender: FDA-Public Use
  Company Number: JP-GLAXOSMITHKLINE-B0986980A

PATIENT
  Age: 60 Year
  Sex: Male
  Weight: 60 kg

DRUGS (12)
  1. VALTREX [Suspect]
     Indication: HERPES ZOSTER
     Dosage: 1000MG THREE TIMES PER DAY
     Route: 048
     Dates: start: 20140321, end: 20140323
  2. VICCLOX [Concomitant]
     Dosage: 1IUAX PER DAY
     Route: 042
     Dates: start: 20140320, end: 20140320
  3. TAKEPRON [Concomitant]
     Route: 065
  4. HALFDIGOXIN [Concomitant]
     Route: 048
     Dates: end: 20140324
  5. CALBLOCK [Concomitant]
     Route: 048
  6. BAYASPIRIN [Concomitant]
     Route: 048
  7. DIART [Concomitant]
     Route: 048
  8. ARTIST [Concomitant]
     Route: 048
  9. MICARDIS [Concomitant]
     Route: 048
  10. CONIEL [Concomitant]
     Route: 048
  11. ZYLORIC [Concomitant]
     Route: 048
     Dates: end: 20140324
  12. VICCLOX [Concomitant]
     Route: 065
     Dates: start: 20140320, end: 20140320

REACTIONS (3)
  - Renal failure acute [Recovered/Resolved]
  - Malaise [Unknown]
  - Urine output decreased [Unknown]
